FAERS Safety Report 5613074-7 (Version None)
Quarter: 2008Q1

REPORT INFORMATION
  Report Type: 
  Country: None (occurrence: None)
  Receive Date: 20080204
  Receipt Date: 20080128
  Transmission Date: 20080703
  Serious: Yes (Disabling, Other)
  Sender: FDA-Public Use
  Company Number: US-PFIZER INC-2008008547

PATIENT
  Sex: Female
  Weight: 86 kg

DRUGS (4)
  1. VISTARIL CAP [Suspect]
     Indication: PRURITUS
     Dates: start: 20080121, end: 20080121
  2. VISTARIL CAP [Suspect]
     Indication: HYPERSENSITIVITY
  3. HYDROXYZINE PAMOATE [Suspect]
     Indication: PRURITUS
  4. HYDROXYZINE PAMOATE [Suspect]
     Indication: HYPERSENSITIVITY

REACTIONS (2)
  - DISORIENTATION [None]
  - ERYTHEMA [None]
